FAERS Safety Report 7099468-4 (Version None)
Quarter: 2010Q4

REPORT INFORMATION
  Report Type: 
  Country: None (occurrence: None)
  Receive Date: 20101105
  Receipt Date: 20101024
  Transmission Date: 20110411
  Serious: Yes (Hospitalization)
  Sender: FDA-Public Use
  Company Number: GB-DEXPHARM-20101691

PATIENT
  Age: 76 Year
  Sex: Male

DRUGS (5)
  1. OMEPRAZOLE [Suspect]
     Dosage: DOSE: 20 MG MILLIGRAM(S) ORAL
     Route: 048
     Dates: start: 20080801, end: 20100801
  2. ASPIRIN [Concomitant]
  3. CLOPIDOGREL [Concomitant]
  4. FLUPENTIXOL [Concomitant]
  5. METFORMIN [Concomitant]

REACTIONS (5)
  - DIARRHOEA [None]
  - HYPOCALCAEMIA [None]
  - HYPOMAGNESAEMIA [None]
  - HYPOPARATHYROIDISM [None]
  - TETANY [None]
